FAERS Safety Report 8988332 (Version 1)
Quarter: 2012Q4

REPORT INFORMATION
  Report Type: Spontaneous
  Country: US (occurrence: None)
  Receive Date: 20121220
  Receipt Date: 20121220
  Transmission Date: 20130627
  Serious: Yes (Other)
  Sender: FDA-Public Use
  Company Number: None

PATIENT
  Age: 68 Year
  Sex: Male
  Weight: 102.06 kg

DRUGS (1)
  1. SINGULAIR 10 MG GENERIC [Suspect]
     Indication: ASTHMA
     Route: 048
     Dates: start: 20120627, end: 20121210

REACTIONS (6)
  - Depression [None]
  - Initial insomnia [None]
  - Poor quality sleep [None]
  - Nightmare [None]
  - Muscle spasms [None]
  - Palpitations [None]
